FAERS Safety Report 13423958 (Version 1)
Quarter: 2017Q2

REPORT INFORMATION
  Report Type: Spontaneous
  Country: US (occurrence: US)
  Receive Date: 20170410
  Receipt Date: 20170410
  Transmission Date: 20170830
  Serious: Yes (Hospitalization)
  Sender: FDA-Public Use
  Company Number: US-ALLERGAN-1713647US

PATIENT
  Age: 70 Year
  Sex: Female

DRUGS (1)
  1. AVYCAZ [Suspect]
     Active Substance: AVIBACTAM SODIUM\CEFTAZIDIME
     Indication: URINARY TRACT INFECTION

REACTIONS (2)
  - Urinary tract infection [Unknown]
  - Drug ineffective [Unknown]
